FAERS Safety Report 6359779-4 (Version None)
Quarter: 2009Q3

REPORT INFORMATION
  Report Type: 
  Country: None (occurrence: None)
  Receive Date: 20090917
  Receipt Date: 20090914
  Transmission Date: 20100115
  Serious: Yes (Hospitalization, Congenital Anomaly)
  Sender: FDA-Public Use
  Company Number: A0678565A

PATIENT
  Sex: Female
  Weight: 2.4 kg

DRUGS (7)
  1. PAXIL [Suspect]
     Indication: DRUG USE FOR UNKNOWN INDICATION
     Dosage: 20MG PER DAY
     Dates: start: 19970101, end: 20020101
  2. PROCARDIA [Concomitant]
  3. SELDANE [Concomitant]
     Indication: SINUS DISORDER
     Dates: start: 19870830, end: 20071005
  4. MULTI-VITAMINS [Concomitant]
     Dates: start: 19870830, end: 20071005
  5. TYLENOL W/CODEINE #3 [Concomitant]
     Indication: PAIN
     Dates: start: 19870830, end: 20071005
  6. AURALGAN EARDROPS [Concomitant]
     Indication: INFLAMMATION
     Dates: start: 19870830, end: 20071005
  7. AUGMENTIN '500' [Concomitant]
     Indication: INFECTION
     Dates: start: 19870830, end: 20071005

REACTIONS (19)
  - ANAEMIA [None]
  - ATELECTASIS [None]
  - ATRIAL SEPTAL DEFECT [None]
  - CARDIOMEGALY [None]
  - DEXTROCARDIA [None]
  - DRUG EXPOSURE DURING PREGNANCY [None]
  - EATING DISORDER [None]
  - EXOMPHALOS [None]
  - HEART INJURY [None]
  - HERNIA [None]
  - HYPOGLYCAEMIA [None]
  - METABOLIC ACIDOSIS [None]
  - MITRAL VALVE PROLAPSE [None]
  - PATENT DUCTUS ARTERIOSUS [None]
  - PERSISTENT FOETAL CIRCULATION [None]
  - PREMATURE BABY [None]
  - RESPIRATORY DISTRESS [None]
  - SUPRAVENTRICULAR EXTRASYSTOLES [None]
  - VENTRICULAR SEPTAL DEFECT [None]
